FAERS Safety Report 25864168 (Version 1)
Quarter: 2025Q3

REPORT INFORMATION
  Report Type: Spontaneous
  Country: US (occurrence: None)
  Receive Date: 20250926
  Receipt Date: 20250926
  Transmission Date: 20251020
  Serious: No
  Sender: FDA-CTU
  Company Number: None

PATIENT
  Age: 42 Year
  Sex: Male
  Weight: 72.12 kg

DRUGS (3)
  1. TPOXX [Suspect]
     Active Substance: TECOVIRIMAT
     Indication: Monkeypox
     Dosage: FREQUENCY : TWICE A DAY;?
     Route: 048
     Dates: start: 20250604
  2. BRINCIDOFOVIR [Suspect]
     Active Substance: BRINCIDOFOVIR
     Indication: Monkeypox
     Dosage: FREQUENCY : WEEKLY;?
     Dates: start: 20250806
  3. CIDOFOVIR [Suspect]
     Active Substance: CIDOFOVIR

REACTIONS (2)
  - CD4 lymphocytes decreased [None]
  - Drug interaction [None]
